FAERS Safety Report 10044933 (Version 1)
Quarter: 2014Q1

REPORT INFORMATION
  Report Type: Spontaneous
  Country: FR (occurrence: FR)
  Receive Date: 20140328
  Receipt Date: 20140328
  Transmission Date: 20141002
  Serious: Yes (Other)
  Sender: FDA-Public Use
  Company Number: FR-GLAXOSMITHKLINE-B0979838A

PATIENT
  Sex: Male

DRUGS (3)
  1. REQUIP LP [Suspect]
     Indication: PARKINSON^S DISEASE
     Dosage: 8MG THREE TIMES PER DAY
     Route: 048
     Dates: start: 2007
  2. MODOPAR [Suspect]
     Indication: PARKINSON^S DISEASE
     Dosage: 250MG THREE TIMES PER DAY
     Route: 048
     Dates: start: 2006
  3. NEUPRO [Concomitant]
     Indication: PARKINSON^S DISEASE
     Dosage: 12MG PER DAY
     Route: 065
     Dates: start: 2009, end: 2010

REACTIONS (2)
  - Feeding disorder [Recovered/Resolved]
  - Pathological gambling [Recovered/Resolved]
